FAERS Safety Report 6290031-1 (Version None)
Quarter: 2009Q3

REPORT INFORMATION
  Report Type: 
  Country: None (occurrence: None)
  Receive Date: 20090730
  Receipt Date: 20090724
  Transmission Date: 20100115
  Serious: Yes (Hospitalization)
  Sender: FDA-Public Use
  Company Number: IT-BAYER-200923835GPV

PATIENT
  Age: 24 Year
  Sex: Male
  Weight: 54 kg

DRUGS (11)
  1. SORAFENIB [Suspect]
     Indication: HEPATIC NEOPLASM MALIGNANT
     Dosage: TOTAL DAILY DOSE: 800 MG
     Route: 048
     Dates: start: 20070919, end: 20090613
  2. SORAFENIB [Suspect]
     Dosage: TOTAL DAILY DOSE: 1200 MG
     Route: 048
     Dates: start: 20090629
  3. CARDIRENE [Concomitant]
     Indication: MITRAL VALVE PROLAPSE
     Route: 048
  4. PANCREX [Concomitant]
     Indication: PANCREATIC DISORDER
     Route: 048
  5. ENOXAPARIN SODIUM [Concomitant]
     Indication: PLATELET COUNT INCREASED
     Route: 058
  6. LANSOX [Concomitant]
     Indication: PROPHYLAXIS
     Route: 048
  7. FERLIXIT [Concomitant]
     Dosage: 1 FL
     Route: 042
     Dates: start: 20090410, end: 20090611
  8. CO-EFFERALGAN [Concomitant]
     Indication: PAIN
     Route: 048
     Dates: start: 20080505, end: 20090613
  9. IMODIUM [Concomitant]
     Indication: DIARRHOEA
     Route: 048
     Dates: start: 20090427, end: 20090504
  10. NOVORAPID [Concomitant]
     Indication: DIABETES MELLITUS
     Route: 058
  11. LANTUS [Concomitant]
     Indication: DIABETES MELLITUS
     Route: 058

REACTIONS (5)
  - ABDOMINAL INFECTION [None]
  - ABDOMINAL PAIN [None]
  - OEDEMA MOUTH [None]
  - PYREXIA [None]
  - RASH [None]
